FAERS Safety Report 19306098 (Version 1)
Quarter: 2021Q2

REPORT INFORMATION
  Report Type: Spontaneous
  Country: CA (occurrence: CA)
  Receive Date: 20210526
  Receipt Date: 20210526
  Transmission Date: 20210717
  Serious: Yes (Other)
  Sender: FDA-Public Use
  Company Number: CA-PFIZER INC-2021557810

PATIENT
  Sex: Male
  Weight: 56 kg

DRUGS (9)
  1. PHENYTOIN SODIUM. [Suspect]
     Active Substance: PHENYTOIN SODIUM
     Dosage: 300 MG, DAILY (EVERY 24 HOURS WAS INITIATED)
     Route: 042
  2. PANTOPRAZOLE [Concomitant]
     Active Substance: PANTOPRAZOLE
     Dosage: UNK
  3. SALBUTAMOL [Concomitant]
     Active Substance: ALBUTEROL
     Dosage: UNK
  4. MULTIVITAMINS [VITAMINS NOS] [Concomitant]
     Active Substance: VITAMINS
     Dosage: UNK
  5. ACYCLOVIR [ACICLOVIR] [Concomitant]
     Active Substance: ACYCLOVIR
     Dosage: UNK
  6. LEVETIRACETAM. [Concomitant]
     Active Substance: LEVETIRACETAM
     Dosage: UNK
  7. PHENYTOIN SODIUM. [Suspect]
     Active Substance: PHENYTOIN SODIUM
     Indication: SEIZURE PROPHYLAXIS
     Dosage: 900 MG (OVER 60 MINUTES)
     Route: 042
  8. PHENYTOIN SODIUM. [Suspect]
     Active Substance: PHENYTOIN SODIUM
     Dosage: 100 MG, 3X/DAY (EVERY 8 HOURS ON DAY 2)
     Route: 042
  9. IPRATROPIUM [Concomitant]
     Active Substance: IPRATROPIUM
     Dosage: UNK

REACTIONS (6)
  - Electrocardiogram ST segment elevation [Recovered/Resolved]
  - Electrocardiogram QRS complex abnormal [Recovered/Resolved]
  - Anticonvulsant drug level above therapeutic [Recovered/Resolved]
  - Conduction disorder [Recovered/Resolved]
  - Toxicity to various agents [Recovered/Resolved]
  - Electrocardiogram QT prolonged [Recovered/Resolved]
